FAERS Safety Report 5488406-3 (Version None)
Quarter: 2007Q3

REPORT INFORMATION
  Report Type: 
  Country: None (occurrence: None)
  Receive Date: 20070927
  Receipt Date: 20070608
  Transmission Date: 20080115
  Serious: No
  Sender: FDA-Public Use
  Company Number: US-CVT-070120

PATIENT
  Age: 44 Year
  Sex: Female

DRUGS (4)
  1. RANEXA [Suspect]
     Indication: ANGINA PECTORIS
     Dosage: 500 MG, BID, ORAL
     Route: 048
     Dates: start: 20070419, end: 20070426
  2. ISOSORBIDE (ISOSORBIDE) [Concomitant]
  3. METOPROLOL TARTRATE [Concomitant]
  4. ACE INHIBITOR NOS [Concomitant]

REACTIONS (2)
  - PALPITATIONS [None]
  - VENTRICULAR EXTRASYSTOLES [None]
